FAERS Safety Report 10642195 (Version 2)
Quarter: 2014Q4

REPORT INFORMATION
  Report Type: Spontaneous
  Country: FR (occurrence: FR)
  Receive Date: 20141210
  Receipt Date: 20141210
  Transmission Date: 20150529
  Serious: Yes (Hospitalization)
  Sender: FDA-Public Use
  Company Number: FR-ABBVIE-14K-056-1281337-00

PATIENT
  Sex: Female
  Weight: 71 kg

DRUGS (1)
  1. HUMIRA [Suspect]
     Active Substance: ADALIMUMAB
     Indication: CROHN^S DISEASE
     Route: 065
     Dates: start: 201305, end: 201408

REACTIONS (5)
  - Malaise [Unknown]
  - Fall [Unknown]
  - Injection site abscess [Unknown]
  - Dermatitis psoriasiform [Unknown]
  - Abscess [Unknown]

NARRATIVE: CASE EVENT DATE: 2014
